FAERS Safety Report 19443619 (Version 1)
Quarter: 2021Q2

REPORT INFORMATION
  Report Type: Spontaneous
  Country: CN (occurrence: CN)
  Receive Date: 20210621
  Receipt Date: 20210621
  Transmission Date: 20210717
  Serious: Yes (Hospitalization)
  Sender: FDA-Public Use
  Company Number: CN-BAYER-2021-161548

PATIENT
  Age: 34 Year
  Sex: Male
  Weight: 90 kg

DRUGS (1)
  1. ULTRAVIST [Suspect]
     Active Substance: IOPROMIDE
     Indication: COMPUTERISED TOMOGRAM CORONARY ARTERY
     Dosage: 37 G, ONCE
     Route: 042
     Dates: start: 20210604, end: 20210604

REACTIONS (13)
  - Lip blister [Recovering/Resolving]
  - Palpitations [Recovering/Resolving]
  - Rash papular [Recovered/Resolved]
  - Dyspnoea [Recovered/Resolved]
  - Nausea [None]
  - Mouth breathing [Recovering/Resolving]
  - Sputum retention [Recovering/Resolving]
  - Oral mucosal erythema [Recovering/Resolving]
  - Throat tightness [Recovering/Resolving]
  - Dry mouth [Recovering/Resolving]
  - Vision blurred [Recovering/Resolving]
  - Oral mucosal blistering [Recovering/Resolving]
  - Chest discomfort [Recovering/Resolving]

NARRATIVE: CASE EVENT DATE: 20210604
